FAERS Safety Report 12914447 (Version 1)
Quarter: 2016Q4

REPORT INFORMATION
  Report Type: Spontaneous
  Country: US (occurrence: US)
  Receive Date: 20161106
  Receipt Date: 20161106
  Transmission Date: 20170207
  Serious: No
  Sender: FDA-Public Use
  Company Number: US-RELYPSA-RLY2016001720

PATIENT
  Sex: Male

DRUGS (2)
  1. VELTASSA [Suspect]
     Active Substance: PATIROMER
     Indication: HYPERKALAEMIA
     Dosage: 8.4 G, UNKNOWN
     Route: 048
     Dates: start: 2016, end: 2016
  2. VELTASSA [Suspect]
     Active Substance: PATIROMER
     Dosage: 16.8 G, UNKNOWN
     Route: 048
     Dates: start: 2016, end: 2016

REACTIONS (4)
  - Vomiting [Unknown]
  - Liquid product physical issue [Recovered/Resolved]
  - Nausea [Unknown]
  - Drug ineffective [Unknown]

NARRATIVE: CASE EVENT DATE: 2016
